FAERS Safety Report 24789046 (Version 1)
Quarter: 2024Q4

REPORT INFORMATION
  Report Type: Spontaneous
  Country: FR (occurrence: FR)
  Receive Date: 20241230
  Receipt Date: 20241230
  Transmission Date: 20250114
  Serious: Yes (Other)
  Sender: ALEXION PHARMACEUTICALS
  Company Number: None

PATIENT
  Age: 89 Year
  Weight: 67 kg

DRUGS (20)
  1. TICAGRELOR [Suspect]
     Active Substance: TICAGRELOR
     Indication: Infarction
     Dosage: 180 MILLIGRAM, QD, 90 MG MORNING AND EVENING
  2. TICAGRELOR [Suspect]
     Active Substance: TICAGRELOR
     Dosage: 180 MILLIGRAM, QD, 90 MG MORNING AND EVENING
     Route: 048
  3. TICAGRELOR [Suspect]
     Active Substance: TICAGRELOR
     Dosage: 180 MILLIGRAM, QD, 90 MG MORNING AND EVENING
  4. TICAGRELOR [Suspect]
     Active Substance: TICAGRELOR
     Dosage: 180 MILLIGRAM, QD, 90 MG MORNING AND EVENING
     Route: 048
  5. URAPIDIL [Suspect]
     Active Substance: URAPIDIL
     Indication: Hypertension
     Dosage: 60 MILLIGRAM, QD, 30 MG MORNING AND EVENING
     Route: 048
  6. URAPIDIL [Suspect]
     Active Substance: URAPIDIL
     Dosage: 60 MILLIGRAM, QD, 30 MG MORNING AND EVENING
  7. BISOPROLOL [Suspect]
     Active Substance: BISOPROLOL
     Indication: Infarction
     Dosage: 2.5 MILLIGRAM, QD, 2.5 MG IN THE MORNING
     Route: 048
  8. BISOPROLOL [Suspect]
     Active Substance: BISOPROLOL
     Dosage: 2.5 MILLIGRAM, QD, 2.5 MG IN THE MORNING
  9. KAYEXALATE [Suspect]
     Active Substance: SODIUM POLYSTYRENE SULFONATE
     Indication: Dyskalaemia
     Dosage: 3 DOSAGE FORM, QW, 1 MEASURING SPOON ON MONDAY WEDNESDAY AND SATURDAY
     Route: 048
  10. KAYEXALATE [Suspect]
     Active Substance: SODIUM POLYSTYRENE SULFONATE
     Dosage: 3 DOSAGE FORM, QW, 1 MEASURING SPOON ON MONDAY WEDNESDAY AND SATURDAY
  11. VENLAFAXINE [Concomitant]
     Active Substance: VENLAFAXINE HYDROCHLORIDE
     Dosage: UNK
  12. KARDEGIC [Concomitant]
     Active Substance: ASPIRIN DL-LYSINE
     Dosage: UNK
  13. ATORVASTATIN [Concomitant]
     Active Substance: ATORVASTATIN
     Dosage: UNK
  14. OMEPRAZOLE [Concomitant]
     Active Substance: OMEPRAZOLE
     Dosage: UNK
  15. GAVISCON [Concomitant]
     Active Substance: ALUMINUM HYDROXIDE\MAGNESIUM CARBONATE
     Dosage: UNK
  16. NITROGLYCERIN [Concomitant]
     Active Substance: NITROGLYCERIN
     Dosage: UNK
  17. VITAMIN D3 [Concomitant]
     Active Substance: CHOLECALCIFEROL
     Dosage: UNK
  18. LERCANIDIPINE [Concomitant]
     Active Substance: LERCANIDIPINE
     Dosage: UNK
  19. POLYETHYLENE GLYCOLS [Concomitant]
     Active Substance: POLYETHYLENE GLYCOLS
     Dosage: UNK
  20. DOLIPRANE [Concomitant]
     Active Substance: ACETAMINOPHEN
     Dosage: UNK

REACTIONS (1)
  - Interstitial lung disease [Recovering/Resolving]
